FAERS Safety Report 17325176 (Version 1)
Quarter: 2020Q1

REPORT INFORMATION
  Report Type: Spontaneous
  Country: US (occurrence: US)
  Receive Date: 20200127
  Receipt Date: 20200127
  Transmission Date: 20200409
  Serious: Yes (Death)
  Sender: FDA-Public Use
  Company Number: US-PERRIGO-20US000941

PATIENT
  Age: 77 Year
  Sex: Female

DRUGS (3)
  1. DILTIAZEM. [Suspect]
     Active Substance: DILTIAZEM
     Indication: SUSPECTED SUICIDE
     Dosage: UNKNOWN, UNKNOWN
     Route: 065
  2. SALICYLATES NOS [Suspect]
     Active Substance: UNSPECIFIED INGREDIENT
     Indication: SUSPECTED SUICIDE
     Dosage: UNKNOWN, UNKNOWN
     Route: 065
  3. MORPHINE SULFATE. [Suspect]
     Active Substance: MORPHINE SULFATE
     Indication: SUSPECTED SUICIDE
     Dosage: UNKNOWN, UNKNOWN
     Route: 065

REACTIONS (1)
  - Death [Fatal]

NARRATIVE: CASE EVENT DATE: 2018
